FAERS Safety Report 5764397-2 (Version None)
Quarter: 2008Q2

REPORT INFORMATION
  Report Type: 
  Country: None (occurrence: None)
  Receive Date: 20080610
  Receipt Date: 20080522
  Transmission Date: 20081010
  Serious: Yes (Other)
  Sender: FDA-Public Use
  Company Number: US-ABBOTT-08P-163-0454363-00

PATIENT
  Sex: Female

DRUGS (3)
  1. HUMIRA [Suspect]
     Indication: ARTHRITIS
     Dosage: PEN
     Route: 050
     Dates: start: 20050101, end: 20070101
  2. HUMIRA [Suspect]
     Dosage: SYRINGE
  3. HUMIRA [Suspect]
     Indication: ARTHRITIS
     Route: 050
     Dates: start: 20070101

REACTIONS (3)
  - BREAKTHROUGH PAIN [None]
  - CEREBROVASCULAR ACCIDENT [None]
  - DRUG EFFECT DECREASED [None]
